FAERS Safety Report 7719465-2 (Version None)
Quarter: 2011Q3

REPORT INFORMATION
  Report Type: 
  Country: None (occurrence: None)
  Receive Date: 20110830
  Receipt Date: 20110822
  Transmission Date: 20111222
  Serious: Yes (Hospitalization, Other)
  Sender: FDA-Public Use
  Company Number: US-BAYER-201038498NA

PATIENT
  Sex: Female
  Weight: 83.9 kg

DRUGS (2)
  1. YASMIN [Suspect]
     Indication: MENSTRUATION IRREGULAR
     Dosage: UNK UNK, QD
     Route: 048
     Dates: start: 20070501, end: 20071101
  2. YASMIN [Suspect]
     Dosage: UNK
     Dates: start: 20070601

REACTIONS (1)
  - DEEP VEIN THROMBOSIS [None]
